FAERS Safety Report 8582536-5 (Version None)
Quarter: 2012Q3

REPORT INFORMATION
  Report Type: 
  Country: None (occurrence: None)
  Receive Date: 20120809
  Receipt Date: 20120726
  Transmission Date: 20120928
  Serious: Yes (Hospitalization, Other)
  Sender: FDA-Public Use
  Company Number: JP-ROCHE-1062865

PATIENT
  Sex: Male
  Weight: 63 kg

DRUGS (9)
  1. FLUOROURACIL [Concomitant]
     Indication: COLON CANCER
     Route: 040
     Dates: start: 20111219
  2. GRANISETRON [Concomitant]
     Indication: PROPHYLAXIS OF NAUSEA AND VOMITING
     Route: 041
     Dates: start: 20111219
  3. DECADRON PHOSPHATE [Concomitant]
     Indication: PROPHYLAXIS OF NAUSEA AND VOMITING
     Route: 041
     Dates: start: 20111219
  4. KYTRIL [Concomitant]
     Indication: PROPHYLAXIS OF NAUSEA AND VOMITING
     Route: 048
     Dates: start: 20111220
  5. LEVOLEUCOVORIN CALCIUM [Concomitant]
     Indication: COLON CANCER
     Route: 041
     Dates: start: 20111219
  6. DECADRON PHOSPHATE [Concomitant]
     Route: 048
     Dates: start: 20111220
  7. FLUOROURACIL [Concomitant]
     Route: 041
     Dates: start: 20111219
  8. AVASTIN [Suspect]
     Indication: COLON CANCER
     Route: 041
     Dates: start: 20111219, end: 20120410
  9. OXALIPLATIN [Concomitant]
     Indication: COLON CANCER
     Route: 041
     Dates: start: 20111219

REACTIONS (4)
  - CONVULSION [None]
  - HYPERTENSION [None]
  - PNEUMONIA [None]
  - HYPERTENSIVE ENCEPHALOPATHY [None]
